FAERS Safety Report 18967496 (Version 1)
Quarter: 2021Q1

REPORT INFORMATION
  Report Type: Spontaneous
  Country: US (occurrence: US)
  Receive Date: 20210303
  Receipt Date: 20210303
  Transmission Date: 20210420
  Serious: No
  Sender: FDA-Public Use
  Company Number: US-BAUSCH-BL-2021-005279

PATIENT
  Sex: Female

DRUGS (2)
  1. TRETINOIN CREAM 0.05% [Suspect]
     Active Substance: TRETINOIN
     Indication: OFF LABEL USE
  2. TRETINOIN CREAM 0.05% [Suspect]
     Active Substance: TRETINOIN
     Indication: SKIN CANCER
     Dosage: AT NIGHT
     Route: 061

REACTIONS (2)
  - Off label use [Unknown]
  - Dry skin [Not Recovered/Not Resolved]
